FAERS Safety Report 19205731 (Version 1)
Quarter: 2021Q2

REPORT INFORMATION
  Report Type: Spontaneous
  Country: US (occurrence: US)
  Receive Date: 20210503
  Receipt Date: 20210503
  Transmission Date: 20210717
  Serious: No
  Sender: FDA-Public Use
  Company Number: US-FARMAPROD-202102-0173

PATIENT
  Sex: Male
  Weight: 69.01 kg

DRUGS (3)
  1. OXERVATE [Suspect]
     Active Substance: CENEGERMIN-BKBJ
     Indication: NEUROTROPHIC KERATOPATHY
     Route: 047
     Dates: start: 20210119, end: 20210318
  2. VALSARTAN. [Concomitant]
     Active Substance: VALSARTAN
  3. COSOPT [Concomitant]
     Active Substance: DORZOLAMIDE HYDROCHLORIDE\TIMOLOL MALEATE
     Dosage: 22.3 MG?6.8 MG/ML

REACTIONS (4)
  - Eye inflammation [Not Recovered/Not Resolved]
  - Eye irritation [Unknown]
  - Eye pain [Not Recovered/Not Resolved]
  - Eye swelling [Unknown]
